FAERS Safety Report 24676130 (Version 8)
Quarter: 2025Q1

REPORT INFORMATION
  Report Type: Spontaneous
  Country: US (occurrence: US)
  Receive Date: 20241128
  Receipt Date: 20250206
  Transmission Date: 20250408
  Serious: No
  Sender: SANOFI AVENTIS
  Company Number: US-SA-2024SA344845

PATIENT
  Age: 17 Year
  Sex: Female

DRUGS (10)
  1. DUPIXENT [Suspect]
     Active Substance: DUPILUMAB
     Indication: Alopecia
     Dosage: 200 MG, QOW
     Dates: start: 2024
  2. DUPIXENT [Suspect]
     Active Substance: DUPILUMAB
     Indication: Eczema
  3. DUPIXENT [Suspect]
     Active Substance: DUPILUMAB
     Indication: Asthma
  4. DUPIXENT [Suspect]
     Active Substance: DUPILUMAB
     Indication: Dermatitis atopic
  5. DUPIXENT [Suspect]
     Active Substance: DUPILUMAB
     Indication: Hypersensitivity
  6. DUPIXENT [Suspect]
     Active Substance: DUPILUMAB
     Indication: Dermatitis atopic
     Dosage: 300 MG, QOW
     Dates: start: 202302
  7. DUPIXENT [Suspect]
     Active Substance: DUPILUMAB
     Indication: Eczema
  8. DUPIXENT [Suspect]
     Active Substance: DUPILUMAB
     Indication: Alopecia
  9. DUPIXENT [Suspect]
     Active Substance: DUPILUMAB
     Indication: Asthma
  10. DUPIXENT [Suspect]
     Active Substance: DUPILUMAB
     Indication: Hypersensitivity

REACTIONS (6)
  - Rash macular [Not Recovered/Not Resolved]
  - Injection site pain [Unknown]
  - Device failure [Unknown]
  - Product use in unapproved indication [Unknown]
  - Exposure via skin contact [Unknown]
  - Accidental exposure to product [Unknown]

NARRATIVE: CASE EVENT DATE: 20230201
